FAERS Safety Report 17923927 (Version 1)
Quarter: 2020Q2

REPORT INFORMATION
  Report Type: Spontaneous
  Country: US (occurrence: US)
  Receive Date: 20200622
  Receipt Date: 20200622
  Transmission Date: 20200714
  Serious: Yes (Hospitalization)
  Sender: FDA-Public Use
  Company Number: None

PATIENT
  Age: 50 Year
  Sex: Male
  Weight: 96.5 kg

DRUGS (2)
  1. LISINOPRIL. [Concomitant]
     Active Substance: LISINOPRIL
     Dates: start: 20200521, end: 20200614
  2. LISINOPRIL. [Suspect]
     Active Substance: LISINOPRIL
     Dates: start: 20200521, end: 20200614

REACTIONS (1)
  - Lip swelling [None]

NARRATIVE: CASE EVENT DATE: 20200614
